FAERS Safety Report 5674992-7 (Version None)
Quarter: 2008Q1

REPORT INFORMATION
  Report Type: 
  Country: None (occurrence: None)
  Receive Date: 20080320
  Receipt Date: 20080311
  Transmission Date: 20080703
  Serious: Yes (Life-Threatening)
  Sender: FDA-Public Use
  Company Number: BR-AVENTIS-200812092GDDC

PATIENT
  Age: 34 Year
  Sex: Female

DRUGS (3)
  1. ARAVA [Suspect]
     Indication: RHEUMATOID ARTHRITIS
     Route: 048
     Dates: start: 20080202, end: 20080227
  2. HIDANTAL [Suspect]
     Indication: CONVULSION
     Dosage: DOSE: UNK
     Dates: start: 20080201
  3. PREDNISONE TAB [Concomitant]
     Indication: ARTHRITIS
     Route: 048

REACTIONS (4)
  - CONVULSION [None]
  - HEAD INJURY [None]
  - INJURY [None]
  - UPPER LIMB FRACTURE [None]
